FAERS Safety Report 8905132 (Version 1)
Quarter: 2012Q4

REPORT INFORMATION
  Report Type: 
  Country: BD (occurrence: BD)
  Receive Date: 20121112
  Receipt Date: 20121112
  Transmission Date: 20130627
  Serious: Yes (Death)
  Sender: FDA-Public Use
  Company Number: PHHY2012BD103762

PATIENT
  Age: 64 Year
  Sex: Male

DRUGS (1)
  1. EXELON PATCH [Suspect]
     Indication: DEMENTIA
     Dosage: 5 cm (4.6 mg daily)
     Route: 062
     Dates: start: 201109

REACTIONS (1)
  - Viral infection [Fatal]
